FAERS Safety Report 19280867 (Version 6)
Quarter: 2024Q1

REPORT INFORMATION
  Report Type: Report from Study
  Country: US (occurrence: US)
  Receive Date: 20210520
  Receipt Date: 20240208
  Transmission Date: 20240409
  Serious: Yes (Other)
  Sender: FDA-Public Use
  Company Number: US-TAKEDA-US202027814

PATIENT
  Sex: Female

DRUGS (1)
  1. HUMAN IMMUNOGLOBULIN G [Suspect]
     Active Substance: HUMAN IMMUNOGLOBULIN G
     Indication: Immunodeficiency common variable
     Dosage: 12 GRAM, 1/WEEK
     Route: 065

REACTIONS (7)
  - Cataract [Unknown]
  - Pneumonia [Unknown]
  - Immunoglobulins decreased [Unknown]
  - Infectious mononucleosis [Recovering/Resolving]
  - Influenza [Unknown]
  - Stress [Unknown]
  - COVID-19 [Unknown]
